FAERS Safety Report 4848167-5 (Version None)
Quarter: 2005Q4

REPORT INFORMATION
  Report Type: 
  Country: None (occurrence: None)
  Receive Date: 20051116
  Receipt Date: 20050822
  Transmission Date: 20060501
  Serious: Yes (Other)
  Sender: FDA-Public Use
  Company Number: HQWYE064123AUG05

PATIENT
  Age: 34 Year
  Sex: Female
  Weight: 90.8 kg

DRUGS (4)
  1. ADVIL COLD AND SINUS [Suspect]
     Indication: NASAL CONGESTION
     Dosage: 1 TABLET THREE TIMES DAILY, ORAL
     Route: 048
     Dates: start: 20050819, end: 20050820
  2. ADVIL COLD AND SINUS [Suspect]
     Indication: PAIN
     Dosage: 1 TABLET THREE TIMES DAILY, ORAL
     Route: 048
     Dates: start: 20050819, end: 20050820
  3. ADVIL COLD AND SINUS [Suspect]
     Indication: PYREXIA
     Dosage: 1 TABLET THREE TIMES DAILY, ORAL
     Route: 048
     Dates: start: 20050819, end: 20050820
  4. CLARITIN [Suspect]
     Dosage: 1 TABLET DAILY, ORAL
     Route: 048
     Dates: start: 20050817, end: 20050819

REACTIONS (3)
  - DIZZINESS [None]
  - HEART RATE ABNORMAL [None]
  - TREMOR [None]
